FAERS Safety Report 8145817-5 (Version None)
Quarter: 2012Q1

REPORT INFORMATION
  Report Type: 
  Country: None (occurrence: None)
  Receive Date: 20120217
  Receipt Date: 20110427
  Transmission Date: 20120608
  Serious: No
  Sender: FDA-Public Use
  Company Number: US-ABBOTT-11P-163-0722300-00

PATIENT
  Sex: Female
  Weight: 113.5 kg

DRUGS (9)
  1. LISINOPRIL [Concomitant]
     Indication: HYPERTENSION
  2. PERCOCET [Concomitant]
     Indication: PAIN IN EXTREMITY
  3. SIMCOR [Suspect]
     Indication: BLOOD CHOLESTEROL INCREASED
     Dosage: 1000/40MG DAILY
     Dates: start: 20100101, end: 20110425
  4. VERAPAMIL [Concomitant]
     Indication: HYPERTENSION
  5. LEVOTHYROXINE SODIUM [Concomitant]
     Indication: HYPOTHYROIDISM
  6. ASPIRIN [Concomitant]
     Indication: PROPHYLAXIS
  7. FISH OIL [Concomitant]
     Indication: MEDICAL DIET
  8. SIMCOR [Suspect]
     Dosage: 500/20MG, 3 TABS PER DAY
     Dates: start: 20110426
  9. FOSAMAX [Concomitant]
     Indication: OSTEOPOROSIS

REACTIONS (3)
  - BURNING SENSATION [None]
  - PRURITUS [None]
  - GENERALISED ERYTHEMA [None]
